FAERS Safety Report 8045856-9 (Version None)
Quarter: 2012Q1

REPORT INFORMATION
  Report Type: 
  Country: None (occurrence: None)
  Receive Date: 20120113
  Receipt Date: 20120105
  Transmission Date: 20120608
  Serious: Yes (Hospitalization)
  Sender: FDA-Public Use
  Company Number: US-GLAXOSMITHKLINE-A0791885A

PATIENT
  Age: 59 Year
  Sex: Female
  Weight: 142.3 kg

DRUGS (9)
  1. AMARYL [Concomitant]
  2. AVANDAMET [Suspect]
     Indication: DIABETES MELLITUS
     Route: 048
  3. METFORMIN HCL [Concomitant]
  4. SYNTHROID [Concomitant]
  5. NORVASC [Concomitant]
  6. ZOCOR [Concomitant]
  7. AVANDIA [Suspect]
     Indication: DIABETES MELLITUS
     Route: 048
     Dates: end: 20070101
  8. LOPRESSOR [Concomitant]
  9. HYDROCHLOROTHIAZIDE [Concomitant]

REACTIONS (8)
  - TRAUMATIC LUNG INJURY [None]
  - RESPIRATORY FAILURE [None]
  - PNEUMONIA [None]
  - AORTIC VALVE STENOSIS [None]
  - CARDIOVASCULAR DISORDER [None]
  - CARDIAC FAILURE CONGESTIVE [None]
  - RENAL FAILURE ACUTE [None]
  - CHRONIC OBSTRUCTIVE PULMONARY DISEASE [None]
